FAERS Safety Report 17664776 (Version 1)
Quarter: 2020Q2

REPORT INFORMATION
  Report Type: Spontaneous
  Country: US (occurrence: US)
  Receive Date: 20200414
  Receipt Date: 20200414
  Transmission Date: 20200713
  Serious: No
  Sender: FDA-Public Use
  Company Number: US-SA-2020SA095685

PATIENT
  Age: 38 Year
  Sex: Male

DRUGS (5)
  1. BENADRYL [Concomitant]
     Active Substance: DIPHENHYDRAMINE HYDROCHLORIDE
     Indication: PREMEDICATION
     Dosage: 50 MG 1 HOUR BEFORE INFUSION
     Route: 048
     Dates: start: 20200404
  2. TYLENOL [Concomitant]
     Active Substance: ACETAMINOPHEN
     Indication: PREMEDICATION
     Dosage: 1 G ONE HOUR BEFORE THE INFUSION
     Route: 065
     Dates: start: 20200404
  3. FABRAZYME [Suspect]
     Active Substance: AGALSIDASE BETA
     Indication: FABRY^S DISEASE
     Dosage: 75 MG, QOW
     Route: 041
     Dates: start: 2014
  4. CROMOLYN [CROMOGLICIC ACID] [Concomitant]
     Active Substance: CROMOLYN
     Dosage: 800 MG 24 HOURS BEFORE INFUSION
  5. MEDROL [Concomitant]
     Active Substance: METHYLPREDNISOLONE
     Dosage: 4 MG 1 HOUR BEFORE INFUSION
     Route: 065
     Dates: start: 20200404

REACTIONS (5)
  - Urticaria [Recovered/Resolved]
  - Myalgia [Unknown]
  - Infusion related reaction [Unknown]
  - Pruritus [Recovered/Resolved]
  - Muscle spasms [Unknown]

NARRATIVE: CASE EVENT DATE: 20200404
